FAERS Safety Report 4693268-8 (Version None)
Quarter: 2005Q2

REPORT INFORMATION
  Report Type: 
  Country: None (occurrence: None)
  Receive Date: 20050615
  Receipt Date: 20050526
  Transmission Date: 20051028
  Serious: Yes (Other)
  Sender: FDA-Public Use
  Company Number: USA050599136

PATIENT
  Sex: Male

DRUGS (1)
  1. PROZAC [Suspect]
     Dates: start: 20041213

REACTIONS (1)
  - MURDER [None]
